FAERS Safety Report 6806829-4 (Version None)
Quarter: 2010Q2

REPORT INFORMATION
  Report Type: 
  Country: None (occurrence: None)
  Receive Date: 20100629
  Receipt Date: 20100622
  Transmission Date: 20101027
  Serious: Yes (Hospitalization, Other)
  Sender: FDA-Public Use
  Company Number: FR-ELI_LILLY_AND_COMPANY-FR201006005616

PATIENT
  Age: 58 Year
  Sex: Female

DRUGS (2)
  1. ALIMTA [Suspect]
     Indication: NEOPLASM PROGRESSION
     Dosage: 825 MG, UNKNOWN
     Route: 042
     Dates: start: 20090820, end: 20091210
  2. ARTOTEC [Concomitant]
     Indication: PAIN
     Route: 048
     Dates: end: 20100503

REACTIONS (3)
  - POST PROCEDURAL COMPLICATION [None]
  - RENAL FAILURE ACUTE [None]
  - TUBULOINTERSTITIAL NEPHRITIS [None]
